FAERS Safety Report 5409815-4 (Version None)
Quarter: 2007Q3

REPORT INFORMATION
  Report Type: 
  Country: None (occurrence: None)
  Receive Date: 20070809
  Receipt Date: 20070809
  Transmission Date: 20080115
  Serious: Yes (Other)
  Sender: FDA-Public Use
  Company Number: A0668817A

PATIENT
  Age: 59 Year
  Sex: Female

DRUGS (3)
  1. ALLI [Suspect]
     Indication: WEIGHT LOSS DIET
     Route: 065
     Dates: start: 20070701, end: 20070805
  2. DIOVAN [Concomitant]
  3. NAPROXEN [Concomitant]

REACTIONS (5)
  - BACK PAIN [None]
  - NAUSEA [None]
  - PAIN [None]
  - PANCREATITIS [None]
  - STOMACH DISCOMFORT [None]
